FAERS Safety Report 4450622-7 (Version None)
Quarter: 2004Q3

REPORT INFORMATION
  Report Type: 
  Country: None (occurrence: None)
  Receive Date: 20040914
  Receipt Date: 20040831
  Transmission Date: 20050211
  Serious: Yes (Hospitalization)
  Sender: FDA-Public Use
  Company Number: 2004230889US

PATIENT
  Sex: Female

DRUGS (3)
  1. ELLENCE [Suspect]
     Indication: BREAST CANCER
     Dosage: 75 MG/M2, CYCLIC, IV
     Route: 042
     Dates: start: 20040809, end: 20040809
  2. COMPARATOR-DOCETAXEL(DOCETAXEL) INJECTION [Suspect]
     Indication: BREAST CANCER
     Dosage: 75 MG/M2, CYCLIC, IV
     Route: 042
     Dates: start: 20040809, end: 20040809
  3. ZOMETA [Suspect]
     Indication: BREAST CANCER
     Dosage: 4 MG, IV
     Route: 042
     Dates: start: 20040809, end: 20040809

REACTIONS (3)
  - ARTHRALGIA [None]
  - ERYTHEMA [None]
  - JOINT RANGE OF MOTION DECREASED [None]
